FAERS Safety Report 14906662 (Version 1)
Quarter: 2018Q2

REPORT INFORMATION
  Report Type: Spontaneous
  Country: US (occurrence: US)
  Receive Date: 20180517
  Receipt Date: 20180517
  Transmission Date: 20180711
  Serious: No
  Sender: FDA-Public Use
  Company Number: US-SA-2016SA224314

PATIENT
  Age: 75 Year
  Sex: Male
  Weight: 77.1 kg

DRUGS (9)
  1. LANTUS [Suspect]
     Active Substance: INSULIN GLARGINE
     Indication: TYPE 2 DIABETES MELLITUS
     Dosage: DOSE:40 UNIT(S)
     Route: 051
     Dates: start: 20170817
  2. TRESIBA [Suspect]
     Active Substance: INSULIN DEGLUDEC
     Indication: TYPE 2 DIABETES MELLITUS
     Dosage: DOSE:20 UNIT(S)
     Route: 058
     Dates: start: 201610
  3. SOLOSTAR [Concomitant]
     Active Substance: DEVICE
  4. METFORMIN [Suspect]
     Active Substance: METFORMIN HYDROCHLORIDE
     Indication: TYPE 2 DIABETES MELLITUS
     Route: 048
  5. LANTUS SOLOSTAR [Concomitant]
     Active Substance: INSULIN GLARGINE
  6. LANTUS [Suspect]
     Active Substance: INSULIN GLARGINE
     Indication: TYPE 2 DIABETES MELLITUS
     Dosage: DOSE:10 UNIT(S)
     Route: 051
     Dates: start: 201609
  7. LANTUS [Suspect]
     Active Substance: INSULIN GLARGINE
     Indication: TYPE 2 DIABETES MELLITUS
     Dosage: DOSE:1.2 UNIT(S)
     Route: 058
     Dates: start: 201607
  8. VICTOZA [Suspect]
     Active Substance: LIRAGLUTIDE
     Indication: TYPE 2 DIABETES MELLITUS
     Dosage: DOSE: 1.2 MG UPTO 1.8 MG
     Route: 058
     Dates: start: 201610
  9. FLEXTOUCH/INSULIN DETEMIR [Concomitant]
     Dates: start: 201610

REACTIONS (2)
  - Dizziness [Not Recovered/Not Resolved]
  - Blood glucose increased [Not Recovered/Not Resolved]

NARRATIVE: CASE EVENT DATE: 20170828
